FAERS Safety Report 15881523 (Version 1)
Quarter: 2019Q1

REPORT INFORMATION
  Report Type: Spontaneous
  Country: US (occurrence: US)
  Receive Date: 20190128
  Receipt Date: 20190128
  Transmission Date: 20190417
  Serious: Yes (Other)
  Sender: FDA-Public Use
  Company Number: US-THE MENTHOLATUM COMPANY-2061844

PATIENT
  Age: 18 Year
  Sex: Female
  Weight: 54.55 kg

DRUGS (1)
  1. OXY RAPID TREATMENT 3 IN 1 PADS MAXIMUM ACTION [Suspect]
     Active Substance: SALICYLIC ACID
     Indication: ACNE
     Route: 061
     Dates: start: 20190111, end: 20190112

REACTIONS (2)
  - Swelling face [Recovering/Resolving]
  - Application site discolouration [Recovering/Resolving]

NARRATIVE: CASE EVENT DATE: 20190112
